FAERS Safety Report 14251946 (Version 1)
Quarter: 2017Q4

REPORT INFORMATION
  Report Type: Spontaneous
  Country: US (occurrence: US)
  Receive Date: 20171205
  Receipt Date: 20171205
  Transmission Date: 20180321
  Serious: No
  Sender: FDA-Public Use
  Company Number: US-GLAXOSMITHKLINE-US2017GSK185059

PATIENT
  Sex: Female

DRUGS (1)
  1. BREO ELLIPTA [Suspect]
     Active Substance: FLUTICASONE FUROATE\VILANTEROL TRIFENATATE
     Indication: PRODUCT USED FOR UNKNOWN INDICATION
     Dosage: 3 PUFF(S), QD
     Route: 055

REACTIONS (6)
  - Anxiety [Unknown]
  - Heart rate irregular [Unknown]
  - Feeling cold [Unknown]
  - Nervousness [Unknown]
  - Tremor [Unknown]
  - Overdose [Unknown]
